FAERS Safety Report 9650706 (Version 1)
Quarter: 2013Q4

REPORT INFORMATION
  Report Type: Spontaneous
  Country: CA (occurrence: CA)
  Receive Date: 20131029
  Receipt Date: 20131029
  Transmission Date: 20140711
  Serious: Yes (Death, Other)
  Sender: FDA-Public Use
  Company Number: CA-ROCHE-1292245

PATIENT
  Age: 49 Year
  Sex: Female

DRUGS (10)
  1. HERCEPTIN [Suspect]
     Indication: PRODUCT USED FOR UNKNOWN INDICATION
     Route: 042
  2. AFINITOR [Suspect]
     Indication: PRODUCT USED FOR UNKNOWN INDICATION
     Dosage: DURATION: 49 DAYS
     Route: 048
  3. PACLITAXEL [Suspect]
     Indication: PRODUCT USED FOR UNKNOWN INDICATION
     Route: 042
  4. CARVEDILOL [Concomitant]
     Route: 065
  5. DOXEPIN [Concomitant]
     Route: 065
  6. EFFEXOR XR [Concomitant]
     Route: 065
  7. FLUTAMIDE [Concomitant]
     Route: 065
  8. KEPPRA [Concomitant]
     Route: 065
  9. MS CONTIN [Concomitant]
     Route: 065
  10. RAMIPRIL [Concomitant]

REACTIONS (6)
  - Breast cancer [Fatal]
  - Ejection fraction decreased [Fatal]
  - Lymphocytic infiltration [Fatal]
  - Neoplasm progression [Fatal]
  - Opportunistic infection [Fatal]
  - Pneumonitis [Fatal]
